FAERS Safety Report 10026799 (Version 1)
Quarter: 2014Q1

REPORT INFORMATION
  Report Type: Spontaneous
  Country: FR (occurrence: FR)
  Receive Date: 20140321
  Receipt Date: 20140321
  Transmission Date: 20141002
  Serious: Yes (Other)
  Sender: FDA-Public Use
  Company Number: FR-SHIRE-FR201400548

PATIENT
  Sex: 0

DRUGS (2)
  1. QUASYM LP [Suspect]
     Indication: ATTENTION DEFICIT/HYPERACTIVITY DISORDER
     Dosage: UNK UNK, UNKNOWN
     Route: 048
     Dates: start: 201201, end: 201202
  2. RITALIN [Suspect]
     Indication: ATTENTION DEFICIT/HYPERACTIVITY DISORDER
     Dosage: UNK, UNKNOWN
     Route: 065
     Dates: start: 201111, end: 201112

REACTIONS (3)
  - Social avoidant behaviour [Recovered/Resolved]
  - Regressive behaviour [Recovered/Resolved]
  - Abnormal behaviour [Recovered/Resolved]
